FAERS Safety Report 5961894-1 (Version None)
Quarter: 2008Q4

REPORT INFORMATION
  Report Type: 
  Country: None (occurrence: None)
  Receive Date: 20081121
  Receipt Date: 20081119
  Transmission Date: 20090506
  Serious: Yes (Death, Hospitalization)
  Sender: FDA-Public Use
  Company Number: US-BRISTOL-MYERS SQUIBB COMPANY-14068282

PATIENT
  Age: 76 Year
  Sex: Female

DRUGS (12)
  1. ABATACEPT [Suspect]
     Indication: RHEUMATOID ARTHRITIS
     Route: 042
     Dates: start: 20040614, end: 20071218
  2. CEPHALEXIN [Suspect]
  3. LASIX [Suspect]
     Indication: HYPERTENSION
     Route: 048
     Dates: start: 20070101
  4. METOLAZONE [Suspect]
     Indication: HYPERTENSION
     Route: 048
     Dates: start: 20070101
  5. LEVOFLOXACIN [Suspect]
  6. ASPIRIN [Concomitant]
     Indication: CARDIOVASCULAR EVENT PROPHYLAXIS
     Route: 048
     Dates: start: 20020815
  7. GLYBURIDE [Concomitant]
     Indication: DIABETES MELLITUS
     Route: 048
     Dates: start: 20070101
  8. LEVOXYL [Concomitant]
     Indication: HYPOTHYROIDISM
     Route: 048
     Dates: start: 20040101
  9. KLOR-CON M [Concomitant]
     Indication: MINERAL SUPPLEMENTATION
     Dosage: 2DF-2TAB
     Route: 048
     Dates: start: 20070101
  10. GEMFIBROZIL [Concomitant]
     Indication: BLOOD CHOLESTEROL
     Route: 048
     Dates: start: 20070101
  11. DILTIAZEM HCL [Concomitant]
     Indication: HYPERTENSION
     Route: 048
     Dates: start: 20070101
  12. LANTUS [Concomitant]
     Indication: DIABETES MELLITUS
     Dates: start: 20070101

REACTIONS (5)
  - CARDIAC ARREST [None]
  - CHEST PAIN [None]
  - CLOSTRIDIUM DIFFICILE COLITIS [None]
  - RENAL FAILURE ACUTE [None]
  - SEPSIS [None]
